FAERS Safety Report 9299148 (Version 2)
Quarter: 2013Q2

REPORT INFORMATION
  Report Type: Spontaneous
  Country: GB (occurrence: GB)
  Receive Date: 20130520
  Receipt Date: 20130603
  Transmission Date: 20140414
  Serious: Yes (Life-Threatening, Hospitalization)
  Sender: FDA-Public Use
  Company Number: GB-PFIZER INC-2013152018

PATIENT
  Age: 63 Year
  Sex: Female

DRUGS (7)
  1. SERTRALINE HCL [Suspect]
     Dosage: 50 MG, 1X/DAY
     Route: 048
     Dates: start: 20130424, end: 2013
  2. PARACETAMOL [Concomitant]
     Dosage: UNK
  3. ASPIRIN [Concomitant]
     Dosage: 75 MG, 1X/DAY
     Route: 048
  4. ATENOLOL [Concomitant]
     Dosage: 50 MG, 1X/DAY, AT NIGHT
     Route: 048
  5. RAMIPRIL [Concomitant]
     Dosage: 10 MG, 1X/DAY, AT NIGHT
     Route: 048
  6. SIMVASTATIN [Concomitant]
     Dosage: 40 MG, 1X/DAY, AT NIGHT
     Route: 048
  7. OMEPRAZOLE [Concomitant]
     Dosage: 20 MG, 2X/DAY

REACTIONS (2)
  - Intentional overdose [Recovered/Resolved]
  - Suicide attempt [Recovered/Resolved]
